FAERS Safety Report 7458513-4 (Version None)
Quarter: 2011Q2

REPORT INFORMATION
  Report Type: 
  Country: None (occurrence: None)
  Receive Date: 20110426
  Receipt Date: 20110412
  Transmission Date: 20111010
  Serious: Yes (Other)
  Sender: FDA-Public Use
  Company Number: DE-GDP-11410456

PATIENT
  Sex: Male
  Weight: 91 kg

DRUGS (1)
  1. METVIX (METHYL AMINOLEVULINATE HYDROCHLORIDE) 16% [Suspect]
     Indication: ACTINIC KERATOSIS
     Dosage: (TOPICAL)
     Route: 061
     Dates: start: 20110401, end: 20110401

REACTIONS (3)
  - PAIN [None]
  - SCAB [None]
  - SKIN EROSION [None]
